FAERS Safety Report 17014566 (Version 2)
Quarter: 2020Q1

REPORT INFORMATION
  Report Type: Spontaneous
  Country: PT (occurrence: PT)
  Receive Date: 20191111
  Receipt Date: 20200116
  Transmission Date: 20200409
  Serious: Yes (Other)
  Sender: FDA-Public Use
  Company Number: PT-AUROBINDO-AUR-APL-2019-070392

PATIENT
  Age: 65 Year
  Sex: Male

DRUGS (2)
  1. EPCLUSA [Concomitant]
     Active Substance: SOFOSBUVIR\VELPATASVIR
     Indication: HEPATITIS C
     Dosage: UNK
     Route: 065
  2. RIBAVIRIN AUROBINDO CAPSULE [Suspect]
     Active Substance: RIBAVIRIN
     Indication: HEPATITIS C
     Dosage: ALTERNATE DOSES OF 200 MG AND 400 MG EVERY OTHER DAY (ACCORDING TO GFR)
     Route: 048
     Dates: start: 20190910, end: 20191007

REACTIONS (1)
  - Anaemia [Unknown]
